FAERS Safety Report 17745480 (Version 1)
Quarter: 2020Q2

REPORT INFORMATION
  Report Type: Spontaneous
  Country: US (occurrence: US)
  Receive Date: 20200505
  Receipt Date: 20200505
  Transmission Date: 20200714
  Serious: Yes (Hospitalization)
  Sender: FDA-Public Use
  Company Number: None

PATIENT
  Age: 64 Year
  Sex: Male

DRUGS (24)
  1. ATORVASTATIN [Concomitant]
     Active Substance: ATORVASTATIN
  2. CELEBREX [Concomitant]
     Active Substance: CELECOXIB
  3. FOLIC ACID. [Concomitant]
     Active Substance: FOLIC ACID
  4. TIMOLOL MAL [Concomitant]
  5. AMLOD/VALSAR [Concomitant]
  6. BACLOFEN. [Concomitant]
     Active Substance: BACLOFEN
  7. BAYER [Concomitant]
     Active Substance: ASPIRIN
  8. LYRICA [Concomitant]
     Active Substance: PREGABALIN
  9. METHOTREXATE. [Concomitant]
     Active Substance: METHOTREXATE
  10. HUMIRA [Suspect]
     Active Substance: ADALIMUMAB
     Indication: RHEUMATOID ARTHRITIS
     Route: 058
     Dates: start: 20200205
  11. LEUCOVOR [Concomitant]
  12. LISINOPRIL. [Concomitant]
     Active Substance: LISINOPRIL
  13. METFORMIN [Concomitant]
     Active Substance: METFORMIN HYDROCHLORIDE
  14. NOVOLOG [Concomitant]
     Active Substance: INSULIN ASPART
  15. HYDROXYCHLOR [Concomitant]
     Active Substance: HYDROXYCHLOROQUINE
  16. MAGNESIUM [Concomitant]
     Active Substance: MAGNESIUM
  17. ATENOLOL. [Concomitant]
     Active Substance: ATENOLOL
  18. EZETIMBE [Concomitant]
     Active Substance: EZETIMIBE
  19. ALPHA LIPOIC [Concomitant]
  20. OMEPRAZOLE. [Concomitant]
     Active Substance: OMEPRAZOLE
  21. TOUJEO MAX [Concomitant]
     Active Substance: INSULIN GLARGINE
  22. VENLAFAXINE [Concomitant]
     Active Substance: VENLAFAXINE HYDROCHLORIDE
  23. OXYCOCONDE [Concomitant]
  24. VITAMIN B12 [Concomitant]
     Active Substance: CYANOCOBALAMIN

REACTIONS (3)
  - Staphylococcal infection [None]
  - Knee arthroplasty [None]
  - Therapy interrupted [None]
